FAERS Safety Report 15372110 (Version 1)
Quarter: 2018Q3

REPORT INFORMATION
  Report Type: Spontaneous
  Country: US (occurrence: US)
  Receive Date: 20180911
  Receipt Date: 20180911
  Transmission Date: 20181010
  Serious: No
  Sender: FDA-Public Use
  Company Number: US-LANNETT COMPANY, INC.-US-2018LAN000742

PATIENT

DRUGS (1)
  1. SUMATRIPTAN. [Suspect]
     Active Substance: SUMATRIPTAN
     Indication: MIGRAINE
     Dosage: 20 MG, UNK
     Route: 045

REACTIONS (3)
  - Cluster headache [Unknown]
  - Condition aggravated [Unknown]
  - Product quality issue [Unknown]
